FAERS Safety Report 9187597 (Version 3)
Quarter: 2013Q2

REPORT INFORMATION
  Report Type: Report from Study
  Country: US (occurrence: US)
  Receive Date: 20130325
  Receipt Date: 20130425
  Transmission Date: 20140414
  Serious: Yes (Hospitalization)
  Sender: FDA-Public Use
  Company Number: US-JNJFOC-20130311019

PATIENT
  Age: 14 Year
  Sex: Female
  Weight: 43.8 kg

DRUGS (9)
  1. REMICADE [Suspect]
     Indication: CROHN^S DISEASE
     Route: 042
     Dates: start: 20091030, end: 20100527
  2. CIMZIA [Concomitant]
     Indication: CROHN^S DISEASE
     Route: 065
     Dates: start: 20130215
  3. 5-ASA [Concomitant]
     Indication: CROHN^S DISEASE
     Route: 048
  4. METHOTREXATE [Concomitant]
     Indication: CROHN^S DISEASE
     Route: 065
  5. PREDNISONE [Concomitant]
     Indication: CROHN^S DISEASE
     Route: 065
  6. FLUOXETINE [Concomitant]
     Route: 065
  7. FOLIC ACID [Concomitant]
     Route: 065
  8. PROTONIX [Concomitant]
     Route: 065
  9. PHENERGAN [Concomitant]
     Route: 065

REACTIONS (1)
  - Crohn^s disease [Recovered/Resolved]
